FAERS Safety Report 22293902 (Version 2)
Quarter: 2023Q2

REPORT INFORMATION
  Report Type: Report from Study
  Country: KR (occurrence: KR)
  Receive Date: 20230508
  Receipt Date: 20230523
  Transmission Date: 20230722
  Serious: Yes (Hospitalization)
  Sender: FDA-Public Use
  Company Number: KR-ELI_LILLY_AND_COMPANY-KR202304000006

PATIENT
  Age: 57 Year
  Sex: Male
  Weight: 82.1 kg

DRUGS (9)
  1. TIRZEPATIDE [Suspect]
     Active Substance: TIRZEPATIDE
     Indication: Type 2 diabetes mellitus
     Dosage: UNK, WEEKLY (1/W)
     Route: 058
     Dates: start: 20210106
  2. TOUJEO [Concomitant]
     Active Substance: INSULIN GLARGINE
     Indication: Type 2 diabetes mellitus
     Dosage: 60 INTERNATIONAL UNIT, DAILY
     Route: 058
     Dates: start: 20200513
  3. METFORMIN HYDROCHLORIDE [Concomitant]
     Active Substance: METFORMIN HYDROCHLORIDE
     Indication: Type 2 diabetes mellitus
     Dosage: 1000 MG, BID
     Route: 048
     Dates: start: 20160926
  4. ASPIRIN [Concomitant]
     Active Substance: ASPIRIN
     Indication: Product used for unknown indication
     Dosage: 100 MG, DAILY
     Route: 048
     Dates: start: 20050407
  5. BISOPROLOL FUMARATE [Concomitant]
     Active Substance: BISOPROLOL FUMARATE
     Indication: Hypertension
     Dosage: 2.5 MG, DAILY
     Route: 048
     Dates: start: 20090114
  6. ARONAMIN GOLD [Concomitant]
     Active Substance: ALPHA-TOCOPHEROL ACETATE\ASCORBIC ACID\FURSULTIAMINE\HYDROXOCOBALAMIN ACETATE\RIBOFLAVIN TETRABUTYRA
     Indication: Prophylaxis
     Dosage: UNK
     Route: 048
     Dates: start: 20100609
  7. CRESTOR [Concomitant]
     Active Substance: ROSUVASTATIN CALCIUM
     Indication: Hyperlipidaemia
     Dosage: 10 MG, DAILY
     Route: 048
     Dates: start: 20050407
  8. EXFORGE [Concomitant]
     Active Substance: AMLODIPINE BESYLATE\VALSARTAN
     Indication: Hypertension
     Dosage: 1 TAB DAILY
     Route: 048
     Dates: start: 20210106
  9. OMACOR [Concomitant]
     Active Substance: OMEGA-3-ACID ETHYL ESTERS
     Indication: Prophylaxis
     Dosage: UNK
     Route: 048
     Dates: start: 20210106

REACTIONS (1)
  - Hepatitis toxic [Recovered/Resolved]

NARRATIVE: CASE EVENT DATE: 20230330
